FAERS Safety Report 14405089 (Version 1)
Quarter: 2018Q1

REPORT INFORMATION
  Report Type: Spontaneous
  Country: US (occurrence: US)
  Receive Date: 20180118
  Receipt Date: 20180118
  Transmission Date: 20180509
  Serious: No
  Sender: FDA-Public Use
  Company Number: US-JNJFOC-20171124081

PATIENT
  Sex: Male
  Weight: 58.97 kg

DRUGS (4)
  1. CONCERTA [Suspect]
     Active Substance: METHYLPHENIDATE HYDROCHLORIDE
     Indication: AUTISM SPECTRUM DISORDER
     Dosage: IN MORNING BEFORE SCHOOL
     Route: 048
     Dates: start: 2014
  2. CONCERTA [Suspect]
     Active Substance: METHYLPHENIDATE HYDROCHLORIDE
     Indication: ATTENTION DEFICIT/HYPERACTIVITY DISORDER
     Dosage: IN MORNING BEFORE SCHOOL
     Route: 048
     Dates: start: 2014
  3. CONCERTA [Suspect]
     Active Substance: METHYLPHENIDATE HYDROCHLORIDE
     Indication: ATTENTION DEFICIT/HYPERACTIVITY DISORDER
     Dosage: IN MORNING BEFORE SCHOOL
     Route: 048
     Dates: end: 20170611
  4. CONCERTA [Suspect]
     Active Substance: METHYLPHENIDATE HYDROCHLORIDE
     Indication: AUTISM SPECTRUM DISORDER
     Dosage: IN MORNING BEFORE SCHOOL
     Route: 048
     Dates: end: 20170611

REACTIONS (2)
  - Drug dose omission [Unknown]
  - Abnormal behaviour [Unknown]
